FAERS Safety Report 16312373 (Version 1)
Quarter: 2019Q2

REPORT INFORMATION
  Report Type: Report from Study
  Country: GB (occurrence: GB)
  Receive Date: 20190515
  Receipt Date: 20190515
  Transmission Date: 20190711
  Serious: Yes (Congenital Anomaly, Other)
  Sender: FDA-Public Use
  Company Number: GB-TEVA-2019-GB-1048968

PATIENT
  Age: 0 Day
  Sex: Male

DRUGS (1)
  1. COPAXONE [Suspect]
     Active Substance: GLATIRAMER ACETATE
     Dosage: PRE-FILLED SYRINGE
     Route: 064

REACTIONS (2)
  - Foetal exposure during pregnancy [Unknown]
  - Gallbladder anomaly congenital [Unknown]

NARRATIVE: CASE EVENT DATE: 20190408
